FAERS Safety Report 8592864 (Version 2)
Quarter: 2013Q3

REPORT INFORMATION
  Report Type: Spontaneous
  Country: US (occurrence: US)
  Receive Date: 20120604
  Receipt Date: 20130718
  Transmission Date: 20140515
  Serious: Yes (Hospitalization)
  Sender: FDA-Public Use
  Company Number: US-ASTRAZENECA-2012SE34728

PATIENT
  Age: 53 Year
  Sex: Male
  Weight: 95.3 kg

DRUGS (9)
  1. NEXIUM [Suspect]
     Indication: GASTROOESOPHAGEAL REFLUX DISEASE
     Dosage: TWICE, NUMEROUS TIMES
     Route: 048
     Dates: start: 2006, end: 2007
  2. METOPROLOL [Concomitant]
     Indication: HYPERTENSION
     Dates: start: 20070712
  3. SIMVASTATIN [Concomitant]
     Indication: BLOOD CHOLESTEROL
     Dates: start: 20070504
  4. LOSARTAN [Concomitant]
     Indication: HYPERTENSION
  5. HYDROCODONE/APAP [Concomitant]
     Dosage: 5/500 MG TAKE 1 TAB 6 H PRN
     Dates: start: 20070730
  6. WARFARIN SOD [Concomitant]
     Dates: start: 20070526
  7. CEPHALEXIN [Concomitant]
     Dates: start: 20070702
  8. AMOXICILLIN [Concomitant]
     Dates: start: 20070724
  9. SULFAMETH/TRIMETHOPRIM [Concomitant]
     Dosage: 800/160 TAKE ONE TABLET Q 8 H
     Dates: start: 20070724

REACTIONS (5)
  - Cardiac disorder [Unknown]
  - Viral infection [Unknown]
  - Ankle fracture [Unknown]
  - Osteoporosis [Unknown]
  - Multiple fractures [Unknown]
